FAERS Safety Report 5608261-8 (Version None)
Quarter: 2008Q1

REPORT INFORMATION
  Report Type: 
  Country: None (occurrence: None)
  Receive Date: 20080130
  Receipt Date: 20080118
  Transmission Date: 20080703
  Serious: Yes (Life-Threatening, Other)
  Sender: FDA-Public Use
  Company Number: RU-ELI_LILLY_AND_COMPANY-RU200712005285

PATIENT
  Sex: Female

DRUGS (6)
  1. HUMULIN N [Suspect]
     Dosage: 8 IU, UNK
     Route: 058
     Dates: start: 20030429
  2. ASPIRIN [Concomitant]
     Dosage: UNK, UNKNOWN
     Route: 065
     Dates: start: 20030101
  3. ENALAPRIL MALEATE [Concomitant]
     Dosage: UNK, UNKNOWN
     Route: 065
     Dates: start: 20030101
  4. CORDARONE [Concomitant]
     Dosage: UNK, UNKNOWN
     Route: 065
     Dates: start: 20030101
  5. VEROSPIRON [Concomitant]
     Dosage: UNK, UNKNOWN
     Route: 065
     Dates: start: 20030101
  6. EFFOX [Concomitant]
     Dosage: UNK, UNKNOWN
     Route: 065
     Dates: start: 20030101

REACTIONS (2)
  - RENAL FAILURE ACUTE [None]
  - SKIN ULCER [None]
